FAERS Safety Report 20546467 (Version 1)
Quarter: 2022Q1

REPORT INFORMATION
  Report Type: Spontaneous
  Country: US (occurrence: None)
  Receive Date: 20220302
  Receipt Date: 20220302
  Transmission Date: 20220423
  Serious: Yes (Hospitalization)
  Sender: FDA-Public Use
  Company Number: None

PATIENT
  Age: 44 Year
  Sex: Female
  Weight: 66.15 kg

DRUGS (6)
  1. AIMOVIG [Suspect]
     Active Substance: ERENUMAB-AOOE
     Indication: Migraine
     Dosage: FREQUENCY : MONTHLY;?
     Route: 058
     Dates: start: 20220301, end: 20220302
  2. Cooper IUD [Concomitant]
  3. RIZATRIPTAN [Concomitant]
     Active Substance: RIZATRIPTAN
  4. DIETARY SUPPLEMENT [Concomitant]
     Active Substance: DIETARY SUPPLEMENT
  5. IBUPROFEN [Concomitant]
     Active Substance: IBUPROFEN
  6. alieve [Concomitant]

REACTIONS (1)
  - Hypertension [None]

NARRATIVE: CASE EVENT DATE: 20220301
